FAERS Safety Report 18564804 (Version 1)
Quarter: 2020Q4

REPORT INFORMATION
  Report Type: Spontaneous
  Country: NL (occurrence: NL)
  Receive Date: 20201201
  Receipt Date: 20201201
  Transmission Date: 20210114
  Serious: Yes (Other)
  Sender: FDA-Public Use
  Company Number: NL-PFIZER INC-2020466828

PATIENT
  Age: 79 Year
  Sex: Female

DRUGS (2)
  1. DASATINIB. [Suspect]
     Active Substance: DASATINIB
     Indication: ACUTE LYMPHOCYTIC LEUKAEMIA
     Dosage: UNK
     Route: 065
  2. RITUXIMAB. [Suspect]
     Active Substance: RITUXIMAB
     Indication: ACUTE LYMPHOCYTIC LEUKAEMIA
     Dosage: UNK
     Route: 065
     Dates: start: 2020

REACTIONS (4)
  - Acute lymphocytic leukaemia recurrent [Unknown]
  - Philadelphia chromosome positive [Unknown]
  - Off label use [Unknown]
  - Minimal residual disease [Unknown]

NARRATIVE: CASE EVENT DATE: 2020
